FAERS Safety Report 6539069-7 (Version None)
Quarter: 2010Q1

REPORT INFORMATION
  Report Type: 
  Country: None (occurrence: None)
  Receive Date: 20100115
  Receipt Date: 20100108
  Transmission Date: 20100710
  Serious: Yes (Hospitalization, Other)
  Sender: FDA-Public Use
  Company Number: PHEH2009US14603

PATIENT
  Sex: Female

DRUGS (9)
  1. EXJADE [Suspect]
     Dosage: 3000 MG, QD
     Route: 048
     Dates: start: 20081105
  2. AMITRIPTYLINE HYDROCHLORIDE [Concomitant]
     Dosage: 50 MG ONE TIME ONLY
  3. CARBAMAZEPINE [Concomitant]
     Dosage: 200MG, 1 1/2 IN AM AND 2 TABS HS
  4. METOPROLOL TARTRATE [Concomitant]
     Dosage: 75 MG, BID
     Route: 048
  5. VITAMINS [Concomitant]
     Dosage: 1 TAB QD
     Route: 048
  6. LOPERAMIDE HYDROCHLORIDE [Concomitant]
     Dosage: UNK
     Route: 048
  7. DIPHENOXYLATE HCL AND ATROPINE SULFATE [Concomitant]
     Dosage: UNK
  8. ACETAMINOPHEN AND HYDROCODONE BITARTRATE [Concomitant]
  9. LORATADINE [Concomitant]
     Dosage: 10 MG, PRN

REACTIONS (3)
  - COMPRESSION FRACTURE [None]
  - DRUG DOSE OMISSION [None]
  - VERTEBROPLASTY [None]
